FAERS Safety Report 21054604 (Version 1)
Quarter: 2022Q3

REPORT INFORMATION
  Report Type: Report from Study
  Country: JP (occurrence: None)
  Receive Date: 20220707
  Receipt Date: 20220707
  Transmission Date: 20221027
  Serious: Yes (Other)
  Sender: FDA-Public Use
  Company Number: JP-Merck Healthcare KGaA-9334413

PATIENT
  Age: 64 Year
  Sex: Male

DRUGS (2)
  1. BAVENCIO [Suspect]
     Active Substance: AVELUMAB
     Indication: Metastatic renal cell carcinoma
     Route: 041
  2. AXITINIB [Concomitant]
     Active Substance: AXITINIB
     Indication: Metastatic renal cell carcinoma

REACTIONS (3)
  - Troponin increased [Unknown]
  - Myocarditis [Unknown]
  - Hypertension [Unknown]
